FAERS Safety Report 7348915-9 (Version None)
Quarter: 2011Q1

REPORT INFORMATION
  Report Type: 
  Country: None (occurrence: None)
  Receive Date: 20110303
  Receipt Date: 20110222
  Transmission Date: 20110831
  Serious: Yes (Death, Hospitalization)
  Sender: FDA-Public Use
  Company Number: GB-JNJFOC-20110203826

PATIENT
  Age: 81 Year
  Sex: Male

DRUGS (1)
  1. DACOGEN [Suspect]
     Indication: ACUTE MYELOID LEUKAEMIA
     Dosage: 41 MG, IN 1 DAY, INTRAVENOUS
     Route: 042
     Dates: start: 20101215, end: 20101219

REACTIONS (4)
  - PNEUMONIA [None]
  - LUNG CONSOLIDATION [None]
  - NEUTROPENIC SEPSIS [None]
  - BRONCHOPULMONARY ASPERGILLOSIS [None]
